FAERS Safety Report 8194443-0 (Version None)
Quarter: 2012Q1

REPORT INFORMATION
  Report Type: 
  Country: None (occurrence: None)
  Receive Date: 20120308
  Receipt Date: 20110202
  Transmission Date: 20120608
  Serious: No
  Sender: FDA-Public Use
  Company Number: US-GLAXOSMITHKLINE-A0911418A

PATIENT
  Age: 30 Year
  Sex: Female

DRUGS (1)
  1. NICORETTE [Suspect]
     Dates: start: 20110202, end: 20110202

REACTIONS (4)
  - FEELING ABNORMAL [None]
  - FATIGUE [None]
  - ANXIETY [None]
  - DRUG ADMINISTRATION ERROR [None]
